FAERS Safety Report 15727145 (Version 2)
Quarter: 2018Q4

REPORT INFORMATION
  Report Type: Report from Study
  Country: None (occurrence: US)
  Receive Date: 20181217
  Receipt Date: 20181227
  Transmission Date: 20190205
  Serious: No
  Sender: FDA-Public Use
  Company Number: US-ABBVIE-18S-163-2592252-00

PATIENT
  Sex: Female
  Weight: 46.59 kg

DRUGS (7)
  1. BONE RENEWAL [Concomitant]
     Indication: BONE DISORDER
  2. ESSENTIAL OIL OMEGA COMPLEX [Concomitant]
     Indication: SUPPLEMENTATION THERAPY
  3. NATURE-THROID [Concomitant]
     Active Substance: THYROID, PORCINE
     Indication: HYPOTHYROIDISM
  4. FOOD NUTIENT COMPLEX [Concomitant]
     Indication: NUTRITIONAL SUPPLEMENTATION
  5. SELENIUM [Concomitant]
     Active Substance: SELENIUM
     Indication: THYROID DISORDER
  6. CREON [Suspect]
     Active Substance: PANCRELIPASE AMYLASE\PANCRELIPASE LIPASE\PANCRELIPASE PROTEASE
     Indication: PANCREATIC CARCINOMA
     Dosage: 3 TIMES A DAY AND A LARGE SNACK
     Route: 048
     Dates: start: 201803
  7. PROBIOTIC [Concomitant]
     Active Substance: PROBIOTICS NOS
     Indication: SUPPLEMENTATION THERAPY

REACTIONS (1)
  - Enzyme abnormality [Unknown]

NARRATIVE: CASE EVENT DATE: 2018
